FAERS Safety Report 17837519 (Version 2)
Quarter: 2020Q2

REPORT INFORMATION
  Report Type: Spontaneous
  Country: JP (occurrence: JP)
  Receive Date: 20200528
  Receipt Date: 20200603
  Transmission Date: 20200714
  Serious: Yes (Death)
  Sender: FDA-Public Use
  Company Number: JP-MALLINCKRODT-T202002395

PATIENT

DRUGS (2)
  1. INOFLO [Suspect]
     Active Substance: NITRIC OXIDE
     Indication: NEWBORN PERSISTENT PULMONARY HYPERTENSION
     Dosage: UNK (INHALATION)
     Route: 055
     Dates: start: 20190526, end: 20190717
  2. INOFLO [Suspect]
     Active Substance: NITRIC OXIDE
     Dosage: UNK (INHALATION)
     Route: 055
     Dates: start: 20190809, end: 20200509

REACTIONS (1)
  - Chronic respiratory disease [Fatal]
